FAERS Safety Report 5133036-6 (Version None)
Quarter: 2006Q4

REPORT INFORMATION
  Report Type: 
  Country: None (occurrence: None)
  Receive Date: 20061018
  Receipt Date: 20061006
  Transmission Date: 20070319
  Serious: Yes (Hospitalization, Disabling, Other)
  Sender: FDA-Public Use
  Company Number: 148374ISR

PATIENT
  Age: 58 Year
  Sex: Male

DRUGS (2)
  1. BACLOFEN [Suspect]
     Indication: MULTIPLE SCLEROSIS
     Dosage: 30 MG (10 MG, 3 IN 1 D)
     Route: 048
     Dates: start: 20010622, end: 20060812
  2. CANNABIS SATIVA [Suspect]
     Route: 002
     Dates: start: 20060420, end: 20060812

REACTIONS (3)
  - ACUTE MYOCARDIAL INFARCTION [None]
  - DRUG INTOLERANCE [None]
  - ORTHOSTATIC HYPOTENSION [None]
